FAERS Safety Report 24995570 (Version 2)
Quarter: 2025Q1

REPORT INFORMATION
  Report Type: Spontaneous
  Country: CR (occurrence: CR)
  Receive Date: 20250221
  Receipt Date: 20250227
  Transmission Date: 20250408
  Serious: No
  Sender: PFIZER
  Company Number: CR-PFIZER INC-PV202500019301

PATIENT
  Age: 12 Year
  Sex: Female

DRUGS (1)
  1. GENOTROPIN [Suspect]
     Active Substance: SOMATROPIN
     Dosage: 0.8 MG, DAILY

REACTIONS (3)
  - Device mechanical issue [Unknown]
  - Device leakage [Unknown]
  - Drug dose omission by device [Unknown]
